FAERS Safety Report 5135081-3 (Version None)
Quarter: 2006Q4

REPORT INFORMATION
  Report Type: 
  Country: None (occurrence: None)
  Receive Date: 20060831
  Receipt Date: 20060726
  Transmission Date: 20070319
  Serious: No
  Sender: FDA-Public Use
  Company Number: 2006-BP-04401BP

PATIENT
  Age: 73 Year
  Sex: Female

DRUGS (19)
  1. SPIRIVA [Suspect]
     Indication: CHRONIC OBSTRUCTIVE PULMONARY DISEASE
     Dosage: 18 MCG (18 MCG, 1 IN 1 D), IH
     Route: 055
     Dates: start: 20050101
  2. SPIRIVA [Suspect]
  3. SPIRIVA [Suspect]
  4. ADVAIR DISKUS 100/50 [Concomitant]
  5. ALBUTEROL [Concomitant]
  6. LEVOTHYROXIN [Concomitant]
  7. ASPIRIN [Concomitant]
  8. ASCORBIC ACID [Concomitant]
  9. METOPROLOL TARTRATE [Concomitant]
  10. HYDROCHLOROTHIAZ [Concomitant]
  11. CALCIUM 600-D [Concomitant]
  12. BIOTIN [Concomitant]
  13. LISINOPRIL [Concomitant]
  14. FOSAMAX [Concomitant]
  15. I-131 THYROID ABLATION [Concomitant]
  16. B12 SHOT [Concomitant]
  17. NORVASC [Concomitant]
  18. LOVASTATIN [Concomitant]
  19. CLONAZEPAM [Concomitant]

REACTIONS (2)
  - AGEUSIA [None]
  - DRY MOUTH [None]
